FAERS Safety Report 8229007-3 (Version None)
Quarter: 2012Q1

REPORT INFORMATION
  Report Type: 
  Country: None (occurrence: None)
  Receive Date: 20120322
  Receipt Date: 20120320
  Transmission Date: 20120608
  Serious: No
  Sender: FDA-Public Use
  Company Number: US-PFIZER INC-2012073124

PATIENT
  Sex: Female
  Weight: 47.166 kg

DRUGS (3)
  1. LOMOTIL [Concomitant]
     Indication: GASTROINTESTINAL DISORDER
     Dosage: UNK
  2. LIPITOR [Concomitant]
     Indication: BLOOD CHOLESTEROL INCREASED
     Dosage: UNK
  3. IBUPROFEN (ADVIL) [Suspect]
     Indication: PROCEDURAL PAIN
     Dosage: UNK, AS NEEDED
     Route: 048
     Dates: end: 20120319

REACTIONS (1)
  - MUSCULOSKELETAL DISCOMFORT [None]
